FAERS Safety Report 23577593 (Version 1)
Quarter: 2024Q1

REPORT INFORMATION
  Report Type: Spontaneous
  Country: US (occurrence: US)
  Receive Date: 20240228
  Receipt Date: 20240228
  Transmission Date: 20240410
  Serious: No
  Sender: FDA-Public Use
  Company Number: US-NOVOPROD-1043889

PATIENT
  Sex: Female

DRUGS (1)
  1. SAXENDA [Suspect]
     Active Substance: LIRAGLUTIDE
     Indication: Product used for unknown indication
     Dosage: 3.0
     Route: 058
     Dates: start: 20221001

REACTIONS (3)
  - Weight increased [Unknown]
  - Weight loss poor [Unknown]
  - Injection site erythema [Unknown]
